FAERS Safety Report 9747281 (Version 2)
Quarter: 2013Q4

REPORT INFORMATION
  Report Type: Spontaneous
  Country: US (occurrence: US)
  Receive Date: 20131212
  Receipt Date: 20131223
  Transmission Date: 20140711
  Serious: Yes (Death, Other)
  Sender: FDA-Public Use
  Company Number: US-009507513-1312USA004765

PATIENT
  Sex: Male

DRUGS (11)
  1. ISENTRESS [Suspect]
     Indication: ACQUIRED IMMUNODEFICIENCY SYNDROME
     Dosage: 400 MG, BID
     Route: 048
  2. KLONOPIN [Concomitant]
     Dosage: UNK
  3. METHADONE HYDROCHLORIDE [Concomitant]
     Dosage: UNK
  4. NISTATIN [Concomitant]
     Dosage: UNK
  5. PROMETHAZINE [Concomitant]
     Dosage: UNK
  6. NORVIR [Concomitant]
     Dosage: UNK
  7. AMBIEN [Concomitant]
     Dosage: UNK
  8. CLINDAMYCIN [Concomitant]
     Dosage: UNK
  9. REYATAZ [Concomitant]
     Dosage: UNK
  10. FENTANYL [Concomitant]
     Dosage: UNK, FORMULATION: PATCH
  11. HYDROMORPHONE [Concomitant]
     Dosage: UNK

REACTIONS (1)
  - Rectal cancer [Fatal]
